FAERS Safety Report 11651595 (Version 3)
Quarter: 2016Q2

REPORT INFORMATION
  Report Type: Spontaneous
  Country: US (occurrence: US)
  Receive Date: 20151022
  Receipt Date: 20160524
  Transmission Date: 20160815
  Serious: Yes (Other)
  Sender: FDA-Public Use
  Company Number: US-TEVA-603309USA

PATIENT
  Sex: Female

DRUGS (1)
  1. ZECUITY [Suspect]
     Active Substance: SUMATRIPTAN SUCCINATE
     Route: 062

REACTIONS (7)
  - Nausea [Unknown]
  - Application site vesicles [Recovered/Resolved with Sequelae]
  - Headache [Unknown]
  - Application site discolouration [Recovered/Resolved with Sequelae]
  - Application site burn [Recovered/Resolved with Sequelae]
  - Application site warmth [Recovered/Resolved]
  - Device battery issue [Unknown]
